FAERS Safety Report 25185900 (Version 1)
Quarter: 2025Q2

REPORT INFORMATION
  Report Type: Spontaneous
  Country: US (occurrence: US)
  Receive Date: 20250410
  Receipt Date: 20250410
  Transmission Date: 20250717
  Serious: No
  Sender: TEVA
  Company Number: US-TEVA-VS-3314359

PATIENT
  Age: 51 Year
  Sex: Male

DRUGS (1)
  1. AUSTEDO XR [Suspect]
     Active Substance: DEUTETRABENAZINE
     Indication: Huntington^s disease
     Route: 048

REACTIONS (4)
  - Vomiting [Unknown]
  - Product use issue [Unknown]
  - Muscle twitching [Unknown]
  - Tic [Unknown]

NARRATIVE: CASE EVENT DATE: 20250101
